FAERS Safety Report 11623595 (Version 1)
Quarter: 2015Q4

REPORT INFORMATION
  Report Type: Spontaneous
  Country: US (occurrence: US)
  Receive Date: 20151013
  Receipt Date: 20151013
  Transmission Date: 20160304
  Serious: No
  Sender: FDA-Public Use
  Company Number: US-JNJFOC-20150207566

PATIENT
  Age: 81 Year
  Sex: Male
  Weight: 117.94 kg

DRUGS (3)
  1. TYLENOL EXTRA STRENGTH [Suspect]
     Active Substance: ACETAMINOPHEN
     Indication: PAIN
     Dosage: 2 CAPLETS
     Route: 048
  2. ADVIL [Concomitant]
     Active Substance: IBUPROFEN
     Indication: PAIN
     Dosage: 1-2
     Route: 065
  3. STOOL SOFTENER [Concomitant]
     Active Substance: DOCUSATE CALCIUM
     Indication: CONSTIPATION
     Dosage: EVERY 2-3 DAYS
     Route: 065

REACTIONS (2)
  - Product use issue [Unknown]
  - Therapeutic response unexpected [Unknown]
